FAERS Safety Report 19689886 (Version 1)
Quarter: 2021Q3

REPORT INFORMATION
  Report Type: Spontaneous
  Country: US (occurrence: US)
  Receive Date: 20210811
  Receipt Date: 20210811
  Transmission Date: 20211014
  Serious: No
  Sender: FDA-Public Use
  Company Number: None

PATIENT
  Age: 80 Year
  Sex: Male
  Weight: 91.3 kg

DRUGS (17)
  1. LORAZEPAM 1MG [Concomitant]
     Active Substance: LORAZEPAM
  2. BUPROPION ER 150MG [Concomitant]
     Active Substance: BUPROPION
  3. PEPTO?BISMOL 525MG/15ML [Concomitant]
  4. LISINOPRIL. [Concomitant]
     Active Substance: LISINOPRIL
  5. PREDNISONE 5MG [Concomitant]
     Active Substance: PREDNISONE
  6. FISH OIL 1000MG [Concomitant]
  7. TYLENOL [Concomitant]
     Active Substance: ACETAMINOPHEN
  8. PROSCAR [Concomitant]
     Active Substance: FINASTERIDE
  9. ABIRATERONE. [Suspect]
     Active Substance: ABIRATERONE ACETATE
     Indication: PROSTATE CANCER
     Route: 048
     Dates: start: 20210130
  10. FLOMAX 0.4MG [Concomitant]
  11. DEPAKOTE ER [Concomitant]
     Active Substance: DIVALPROEX SODIUM
  12. ACTOS [Concomitant]
     Active Substance: PIOGLITAZONE HYDROCHLORIDE
  13. PRAVASTATIN. [Concomitant]
     Active Substance: PRAVASTATIN
  14. LANTUS SOLOSTAR [Concomitant]
     Active Substance: INSULIN GLARGINE
  15. METOPROLOL TARTRATE 25MG [Concomitant]
     Active Substance: METOPROLOL TARTRATE
  16. VITAMIN D3 [Concomitant]
     Active Substance: CHOLECALCIFEROL
  17. METFORMIN [Concomitant]
     Active Substance: METFORMIN HYDROCHLORIDE

REACTIONS (1)
  - Diarrhoea [None]

NARRATIVE: CASE EVENT DATE: 20210811
